FAERS Safety Report 9770943 (Version 2)
Quarter: 2014Q1

REPORT INFORMATION
  Report Type: Spontaneous
  Country: US (occurrence: US)
  Receive Date: 20131218
  Receipt Date: 20140130
  Transmission Date: 20141002
  Serious: No
  Sender: FDA-Public Use
  Company Number: US-PFIZER INC-2013359838

PATIENT
  Sex: Female

DRUGS (2)
  1. LYRICA [Suspect]
     Dosage: UNK
     Dates: start: 20101201
  2. HYDROCODONE [Concomitant]

REACTIONS (3)
  - Feeling abnormal [Unknown]
  - Pain [Unknown]
  - Hypoaesthesia [Unknown]
